FAERS Safety Report 7452610-5 (Version None)
Quarter: 2011Q2

REPORT INFORMATION
  Report Type: 
  Country: None (occurrence: None)
  Receive Date: 20110502
  Receipt Date: 20110422
  Transmission Date: 20111010
  Serious: Yes (Hospitalization)
  Sender: FDA-Public Use
  Company Number: JP-ASTRAZENECA-2011SE24327

PATIENT
  Age: 64 Year
  Sex: Male

DRUGS (3)
  1. MEROPENEM [Suspect]
     Indication: RESPIRATORY TRACT INFECTION
     Route: 042
     Dates: start: 20110419
  2. MEROPENEM [Suspect]
     Indication: BACTERIAL INFECTION
     Route: 042
     Dates: start: 20110419
  3. MEROPENEM [Suspect]
     Indication: PSEUDOMONAS INFECTION
     Route: 042
     Dates: start: 20110419

REACTIONS (1)
  - NEUROPATHY PERIPHERAL [None]
